FAERS Safety Report 4489807-2 (Version None)
Quarter: 2004Q4

REPORT INFORMATION
  Report Type: 
  Country: None (occurrence: None)
  Receive Date: 20041101
  Receipt Date: 20041019
  Transmission Date: 20050328
  Serious: Yes (Other)
  Sender: FDA-Public Use
  Company Number: CN-MERCK-0410CHN00036

PATIENT
  Age: 57 Year
  Sex: Female

DRUGS (3)
  1. VIOXX [Suspect]
     Indication: ARTHRALGIA
     Route: 048
     Dates: start: 20040831, end: 20040902
  2. CLINDAMYCIN PHOSPHATE [Concomitant]
     Indication: ARTHRALGIA
     Route: 042
     Dates: start: 20040830
  3. FLEROXACIN [Concomitant]
     Indication: ARTHRALGIA
     Route: 042
     Dates: start: 20040830

REACTIONS (7)
  - DIZZINESS [None]
  - HYPERTENSION [None]
  - HYPERTENSIVE HEART DISEASE [None]
  - HYPOAESTHESIA [None]
  - LOSS OF CONSCIOUSNESS [None]
  - PROTEIN URINE PRESENT [None]
  - SUPRAVENTRICULAR EXTRASYSTOLES [None]
